FAERS Safety Report 21239615 (Version 1)
Quarter: 2022Q3

REPORT INFORMATION
  Report Type: Spontaneous
  Country: US (occurrence: None)
  Receive Date: 20220820
  Receipt Date: 20220820
  Transmission Date: 20221027
  Serious: Yes (Other)
  Sender: FDA-Public Use
  Company Number: None

PATIENT
  Age: 77 Year
  Sex: Female
  Weight: 59.4 kg

DRUGS (1)
  1. BOTOX [Suspect]
     Active Substance: ONABOTULINUMTOXINA
     Indication: Migraine prophylaxis
     Dosage: OTHER STRENGTH : STANDARD DOSE;?OTHER QUANTITY : 1 INJECTION(S);?OTHER FREQUENCY : THIRD SERIES;?OTH
     Route: 050

REACTIONS (5)
  - Hypoaesthesia [None]
  - Anxiety [None]
  - Panic disorder [None]
  - Vision blurred [None]
  - Asthenia [None]

NARRATIVE: CASE EVENT DATE: 20220820
